FAERS Safety Report 9005593 (Version 2)
Quarter: 2013Q1

REPORT INFORMATION
  Report Type: Spontaneous
  Country: US (occurrence: US)
  Receive Date: 20130109
  Receipt Date: 20130124
  Transmission Date: 20140127
  Serious: Yes (Death, Other)
  Sender: FDA-Public Use
  Company Number: US-PFIZER INC-2013004481

PATIENT
  Age: 89 Year
  Sex: Male

DRUGS (1)
  1. VFEND [Suspect]
     Indication: MENINGITIS COCCIDIOIDES
     Dosage: 200 MG, 2X/DAY
     Dates: start: 20101026

REACTIONS (2)
  - Meningitis coccidioides [Fatal]
  - Disease progression [Fatal]
